FAERS Safety Report 9206306 (Version 1)
Quarter: 2013Q1

REPORT INFORMATION
  Report Type: Spontaneous
  Country: US (occurrence: None)
  Receive Date: 20120718
  Receipt Date: 20120718
  Transmission Date: 20140127
  Serious: Yes (Other)
  Sender: FDA-Public Use
  Company Number: 163-50794-11080945

PATIENT
  Age: 75 Year
  Sex: Male

DRUGS (14)
  1. VIDAZA [Suspect]
     Indication: MYELODYSPLASTIC SYNDROME
     Dosage: UNK
     Dates: start: 201105
  2. PACKED RED BLOOD CELLS (RED BLOOD CELLS, CONCENTRATED) (INJECTION) [Concomitant]
     Indication: MYELODYSPLASTIC SYNDROME
     Dates: start: 201105
  3. ALPRAZOLAM (ALPRAZOLAM) (UNKNOWN) (ALPRAZOLAM) [Concomitant]
  4. EXJADE (DEFERASIROX) (UNKNOWN) [Concomitant]
  5. FOLIC ACID (FOLIC ACID) (UNKNOWN) [Concomitant]
  6. METFORMIN (METFORMIN) UNKNOWN [Concomitant]
  7. HYDROCODONE WITH APAP (PROCET / USA /) (UNKNOWN) [Concomitant]
  8. CLONAZEPAM (CLONAZEPAM) (UNKNOWN) [Concomitant]
  9. GEMFIBROZIL (GEMFIBROZIL) (UNKNOWN) [Concomitant]
  10. MULTIVITAMINS (MULTIVITAMINS) (UNKNOWN) [Concomitant]
  11. SALBUTAMOL SULFATE (SALBUTAMOL SULFATE) (UNKNOWN) [Concomitant]
  12. SYNTHROID (LEVOTHYROXINE SODIUM) (UNKNOWN) [Concomitant]
  13. SOLIRIS (ECULIZUMAB) [Concomitant]
  14. HYDROCODONE/PARACETAMOL (VICODIN) [Concomitant]

REACTIONS (2)
  - Haemoglobin decreased [None]
  - Fatigue [None]
